FAERS Safety Report 9293935 (Version 1)
Quarter: 2013Q1

REPORT INFORMATION
  Report Type: Spontaneous
  Country: US (occurrence: None)
  Receive Date: 20121227
  Receipt Date: 20121227
  Transmission Date: 20140127
  Serious: Yes (Death)
  Sender: FDA-Public Use
  Company Number: PHEH2012US006369

PATIENT
  Age: 27 Year
  Sex: Male
  Weight: 56.2 kg

DRUGS (2)
  1. EXJADE [Suspect]
     Indication: SICKLE CELL ANAEMIA
     Dates: start: 20061227, end: 20070419
  2. HYDREA(HYDROXYCARBAMIDE) [Concomitant]

REACTIONS (2)
  - Sickle cell anaemia with crisis [None]
  - Treatment noncompliance [None]
